FAERS Safety Report 14020649 (Version 2)
Quarter: 2019Q2

REPORT INFORMATION
  Report Type: Spontaneous
  Country: US (occurrence: US)
  Receive Date: 20170928
  Receipt Date: 20190425
  Transmission Date: 20190711
  Serious: No
  Sender: FDA-Public Use
  Company Number: US-ASTRAZENECA-2017SE97149

PATIENT
  Sex: Female
  Weight: 81.4 kg

DRUGS (4)
  1. BYETTA [Suspect]
     Active Substance: EXENATIDE
     Indication: TYPE 2 DIABETES MELLITUS
     Route: 065
  2. BYDUREON [Suspect]
     Active Substance: EXENATIDE
     Indication: TYPE 2 DIABETES MELLITUS
     Route: 058
  3. ONGLYZA [Suspect]
     Active Substance: SAXAGLIPTIN HYDROCHLORIDE
     Indication: TYPE 2 DIABETES MELLITUS
     Route: 048
     Dates: start: 20180912
  4. VICTOZA [Concomitant]
     Active Substance: LIRAGLUTIDE

REACTIONS (5)
  - Adverse drug reaction [Unknown]
  - Therapy cessation [Unknown]
  - Off label use [Unknown]
  - Urticaria [Unknown]
  - Product use in unapproved indication [Unknown]
